FAERS Safety Report 8990561 (Version 1)
Quarter: 2012Q4

REPORT INFORMATION
  Report Type: 
  Country: DE (occurrence: DE)
  Receive Date: 20121228
  Receipt Date: 20121228
  Transmission Date: 20130627
  Serious: Yes (Other)
  Sender: FDA-Public Use
  Company Number: DE-JNJFOC-20121210161

PATIENT
  Age: 43 Year
  Sex: Female

DRUGS (5)
  1. GOLIMUMAB [Suspect]
     Indication: CROHN^S DISEASE
     Route: 058
     Dates: start: 200911
  2. GOLIMUMAB [Suspect]
     Indication: CROHN^S DISEASE
     Route: 058
     Dates: start: 201009
  3. GOLIMUMAB [Suspect]
     Indication: SPONDYLITIS
     Route: 058
     Dates: start: 201009
  4. GOLIMUMAB [Suspect]
     Indication: SPONDYLITIS
     Route: 058
     Dates: start: 200911
  5. AZATHIOPRINE [Concomitant]
     Indication: CROHN^S DISEASE
     Route: 065
     Dates: start: 201009

REACTIONS (2)
  - Ileitis [Recovered/Resolved]
  - Ileal stenosis [Recovered/Resolved]
